FAERS Safety Report 18103536 (Version 1)
Quarter: 2020Q3

REPORT INFORMATION
  Report Type: Spontaneous
  Country: US (occurrence: US)
  Receive Date: 20200731
  Receipt Date: 20200731
  Transmission Date: 20201103
  Serious: Yes (Hospitalization)
  Sender: FDA-Public Use
  Company Number: None

PATIENT
  Age: 45 Year
  Sex: Male

DRUGS (9)
  1. BACLOFEN. [Concomitant]
     Active Substance: BACLOFEN
  2. VITAMIN C [Concomitant]
     Active Substance: ASCORBIC ACID
  3. DEXILANT [Concomitant]
     Active Substance: DEXLANSOPRAZOLE
  4. IPRATROPIUM [Concomitant]
     Active Substance: IPRATROPIUM
  5. VITAMIN B [Concomitant]
     Active Substance: VITAMIN B
  6. DALFAMPRIDINE/10MG [Suspect]
     Active Substance: DALFAMPRIDINE
     Indication: MULTIPLE SCLEROSIS
     Route: 048
     Dates: start: 20181005
  7. ALBUTEROL. [Concomitant]
     Active Substance: ALBUTEROL
  8. VITAMIN D [Concomitant]
     Active Substance: VITAMIN D NOS
  9. METOPROLOL. [Concomitant]
     Active Substance: METOPROLOL

REACTIONS (2)
  - Upper respiratory tract infection [None]
  - Therapy interrupted [None]

NARRATIVE: CASE EVENT DATE: 202007
